FAERS Safety Report 9380319 (Version 1)
Quarter: 2013Q3

REPORT INFORMATION
  Report Type: Spontaneous
  Country: US (occurrence: US)
  Receive Date: 20130702
  Receipt Date: 20130702
  Transmission Date: 20140515
  Serious: Yes (Other)
  Sender: FDA-Public Use
  Company Number: US-BRISTOL-MYERS SQUIBB COMPANY-19064500

PATIENT
  Age: 76 Year
  Sex: Male
  Weight: 73 kg

DRUGS (21)
  1. CISPLATIN [Suspect]
     Indication: NEUROENDOCRINE CARCINOMA OF THE SKIN
     Dates: start: 20130304
  2. ETOPOSIDE [Suspect]
     Indication: NEUROENDOCRINE CARCINOMA OF THE SKIN
     Dates: start: 20130304
  3. ARTIFICIAL TEARS [Concomitant]
     Route: 047
  4. COENZYME-Q10 [Concomitant]
     Dosage: 1DF: 30CAPS?200MG
     Route: 048
  5. COUMADIN [Concomitant]
     Route: 048
  6. FLEXERIL [Concomitant]
     Indication: MUSCLE SPASMS
     Route: 048
  7. FLOMAX [Concomitant]
     Route: 048
  8. LEVOXYL [Concomitant]
     Route: 048
  9. QVAR [Concomitant]
     Dosage: 1DF:800MCG/INH
  10. SPECTAZOLE [Concomitant]
     Route: 061
  11. SPIRIVA [Concomitant]
  12. ZOFRAN [Concomitant]
     Indication: NAUSEA
     Route: 048
  13. ZOFRAN [Concomitant]
     Indication: VOMITING
     Route: 048
  14. ALBUTEROL [Concomitant]
  15. AMIODARONE [Concomitant]
     Route: 048
  16. BACITRACIN [Concomitant]
     Route: 061
  17. LIOTHYRONINE [Concomitant]
     Route: 048
  18. MULTIPLE VITAMINS [Concomitant]
     Route: 048
  19. VITAMIN C [Concomitant]
     Route: 048
  20. VITAMIN D3 [Concomitant]
     Route: 048
  21. VITAMIN E [Concomitant]
     Route: 048

REACTIONS (1)
  - Renal injury [Unknown]
